FAERS Safety Report 4995008-1 (Version None)
Quarter: 2006Q2

REPORT INFORMATION
  Report Type: 
  Country: None (occurrence: None)
  Receive Date: 20060503
  Receipt Date: 20060410
  Transmission Date: 20061013
  Serious: Yes (Hospitalization)
  Sender: FDA-Public Use
  Company Number: 200612671BWH

PATIENT
  Age: 65 Year
  Sex: Male

DRUGS (2)
  1. NEXAVAR [Suspect]
     Indication: METASTASES TO LUNG
     Dosage: 400 MG, BID, ORAL
     Route: 048
     Dates: start: 20060201, end: 20060322
  2. NEXAVAR [Suspect]
     Indication: METASTATIC RENAL CELL CARCINOMA
     Dosage: 400 MG, BID, ORAL
     Route: 048
     Dates: start: 20060201, end: 20060322

REACTIONS (6)
  - DIARRHOEA [None]
  - EPISTAXIS [None]
  - GANGRENE [None]
  - GROIN ABSCESS [None]
  - MUSCULOSKELETAL DISORDER [None]
  - RASH [None]
